FAERS Safety Report 25569455 (Version 1)
Quarter: 2025Q3

REPORT INFORMATION
  Report Type: Spontaneous
  Country: EU (occurrence: EU)
  Receive Date: 20250716
  Receipt Date: 20250716
  Transmission Date: 20251021
  Serious: Yes (Hospitalization, Other)
  Sender: PURDUE
  Company Number: EU-NAPPMUNDI-GBR-2025-0127177

PATIENT
  Age: 20 Year
  Sex: Female

DRUGS (10)
  1. METHYLPHENIDATE HYDROCHLORIDE [Interacting]
     Active Substance: METHYLPHENIDATE HYDROCHLORIDE
     Indication: Attention deficit hyperactivity disorder
     Route: 065
  2. METHYLPHENIDATE HYDROCHLORIDE [Interacting]
     Active Substance: METHYLPHENIDATE HYDROCHLORIDE
     Indication: Attention deficit hyperactivity disorder
     Route: 065
  3. DIAZEPAM [Interacting]
     Active Substance: DIAZEPAM
     Indication: Status epilepticus
     Route: 065
  4. LEVETIRACETAM [Interacting]
     Active Substance: LEVETIRACETAM
     Indication: Status epilepticus
     Route: 065
  5. PHENYTOIN [Interacting]
     Active Substance: PHENYTOIN
     Indication: Status epilepticus
     Route: 065
  6. TOPIRAMATE [Interacting]
     Active Substance: TOPIRAMATE
     Indication: Status epilepticus
     Route: 065
  7. LACOSAMIDE [Interacting]
     Active Substance: LACOSAMIDE
     Indication: Status epilepticus
     Route: 065
  8. CLOBAZAM [Interacting]
     Active Substance: CLOBAZAM
     Indication: Status epilepticus
     Route: 065
  9. LAMOTRIGINE [Interacting]
     Active Substance: LAMOTRIGINE
     Indication: Status epilepticus
     Route: 065
  10. PERAMPANEL [Interacting]
     Active Substance: PERAMPANEL
     Indication: Status epilepticus
     Route: 065

REACTIONS (5)
  - Status epilepticus [Recovering/Resolving]
  - Cortical dysplasia [Recovering/Resolving]
  - Extra dose administered [Unknown]
  - Treatment noncompliance [Unknown]
  - Drug interaction [Unknown]
